FAERS Safety Report 6780358 (Version 3)
Quarter: 2014Q1

REPORT INFORMATION
  Report Type: Spontaneous
  Country: US (occurrence: US)
  Receive Date: 20081007
  Receipt Date: 20140228
  Transmission Date: 20141002
  Serious: Yes (Hospitalization, Other)
  Sender: FDA-Public Use
  Company Number: US-ASTRAZENECA-2007UW21041

PATIENT
  Age: 69 Year
  Sex: Female
  Weight: 76.7 kg

DRUGS (11)
  1. MULTIVITAMIN [Concomitant]
  2. CALCIUM PLUS D [Concomitant]
  3. FISH OIL [Concomitant]
     Indication: SUPPLEMENTATION THERAPY
  4. BABY ASPIRIN [Concomitant]
  5. FOSAMAX [Concomitant]
     Indication: OSTEOPENIA
  6. FOSAMAX [Concomitant]
     Indication: OSTEOPENIA
  7. CENTRUM VITAMINS WITHOUT VITAMIN K [Concomitant]
     Indication: SUPPLEMENTATION THERAPY
     Dosage: DAILY
  8. CALCIUM [Concomitant]
     Indication: SUPPLEMENTATION THERAPY
  9. VITAMIN D3 [Concomitant]
     Indication: SUPPLEMENTATION THERAPY
  10. COUMADIN [Concomitant]
  11. ARIMIDEX [Suspect]
     Indication: BREAST CANCER FEMALE
     Route: 048
     Dates: start: 200404

REACTIONS (10)
  - Fall [Recovered/Resolved]
  - Pulmonary thrombosis [Recovered/Resolved]
  - Cataract [Not Recovered/Not Resolved]
  - Hip fracture [Recovered/Resolved]
  - Aggression [Unknown]
  - Depression [Unknown]
  - Weight decreased [Unknown]
  - Affect lability [Unknown]
  - Osteopenia [Unknown]
  - Pruritus [Recovered/Resolved]
